FAERS Safety Report 4661387-8 (Version None)
Quarter: 2005Q2

REPORT INFORMATION
  Report Type: 
  Country: None (occurrence: None)
  Receive Date: 20050511
  Receipt Date: 20050511
  Transmission Date: 20051028
  Serious: No
  Sender: FDA-Public Use
  Company Number: None

PATIENT
  Age: 68 Year
  Sex: Male

DRUGS (1)
  1. HEPARIN [Suspect]

REACTIONS (3)
  - CORONARY ARTERY SURGERY [None]
  - HEPARIN-INDUCED THROMBOCYTOPENIA [None]
  - PLATELET COUNT INCREASED [None]
